FAERS Safety Report 9270469 (Version 1)
Quarter: 2013Q2

REPORT INFORMATION
  Report Type: Spontaneous
  Country: FR (occurrence: FR)
  Receive Date: 20130503
  Receipt Date: 20130503
  Transmission Date: 20140414
  Serious: Yes (Hospitalization)
  Sender: FDA-Public Use
  Company Number: FR-PFIZER INC-2013133899

PATIENT
  Age: 41 Year
  Sex: Female

DRUGS (8)
  1. XANAX [Suspect]
     Dosage: 0.5 MG, 1X/DAY
     Route: 048
     Dates: start: 20130209, end: 20130409
  2. REGORAFENIB [Suspect]
     Dosage: 40 MG, 4X/DAY
     Route: 048
     Dates: start: 20130316, end: 20130406
  3. STILNOX [Suspect]
     Dosage: UNK
     Route: 048
     Dates: start: 20130309, end: 20130409
  4. TOPALGIC [Suspect]
     Dosage: 160 MG, 1X/DAY AS NEEDED
     Route: 048
     Dates: start: 20130318, end: 20130409
  5. SYMBICORT [Concomitant]
     Dosage: UNK
  6. DOLIPRANE [Concomitant]
     Dosage: UNK
     Dates: start: 20130318
  7. SKENAN [Concomitant]
     Dosage: 10 MG, 2X/DAY
  8. ACTISKENAN [Concomitant]

REACTIONS (1)
  - Pancreatitis acute [Recovering/Resolving]
